FAERS Safety Report 7176208-1 (Version None)
Quarter: 2010Q4

REPORT INFORMATION
  Report Type: 
  Country: None (occurrence: None)
  Receive Date: 20101220
  Receipt Date: 20101210
  Transmission Date: 20110411
  Serious: No
  Sender: FDA-Public Use
  Company Number: US-BIOGENIDEC-2010BI043613

PATIENT
  Age: 53 Year
  Sex: Male

DRUGS (1)
  1. TYSABRI [Suspect]
     Indication: MULTIPLE SCLEROSIS
     Route: 042
     Dates: start: 20101014

REACTIONS (6)
  - CONFUSIONAL STATE [None]
  - GAIT DISTURBANCE [None]
  - HEADACHE [None]
  - HEARING IMPAIRED [None]
  - MUSCULAR WEAKNESS [None]
  - VISUAL IMPAIRMENT [None]
